FAERS Safety Report 10068126 (Version 3)
Quarter: 2014Q2

REPORT INFORMATION
  Report Type: Report from Study
  Country: ES (occurrence: ES)
  Receive Date: 20140409
  Receipt Date: 20140429
  Transmission Date: 20141212
  Serious: Yes (Other)
  Sender: FDA-Public Use
  Company Number: ES-PFIZER INC-2014098135

PATIENT
  Sex: Female

DRUGS (4)
  1. LANSOPRAZOLE [Suspect]
     Dosage: UNK
     Route: 065
  2. PANTOPRAZOLE [Suspect]
     Dosage: UNK
     Route: 065
  3. OMEPRAZOLE [Suspect]
     Dosage: UNK
     Route: 065
  4. ESOMEPRAZOLE MAGNESIUM [Suspect]
     Dosage: UNK
     Route: 065

REACTIONS (3)
  - Dyspnoea [Unknown]
  - Skin test positive [Unknown]
  - Sensitisation [Unknown]
